FAERS Safety Report 17690846 (Version 1)
Quarter: 2020Q2

REPORT INFORMATION
  Report Type: Report from Study
  Country: FR (occurrence: FR)
  Receive Date: 20200422
  Receipt Date: 20200422
  Transmission Date: 20200714
  Serious: Yes (Death)
  Sender: FDA-Public Use
  Company Number: FR-ROCHE-2584620

PATIENT
  Age: 83 Year
  Sex: Male

DRUGS (1)
  1. TOCILIZUMAB. [Suspect]
     Active Substance: TOCILIZUMAB
     Indication: CORONAVIRUS INFECTION
     Dosage: INJECTION 8 MG/KG (UP TO A MAXIMUM OF 800MG PER DOSE), WITH AN INTERVAL OF 12 HOURS.
     Route: 065
     Dates: start: 20200401

REACTIONS (1)
  - Oxygen consumption increased [Fatal]

NARRATIVE: CASE EVENT DATE: 20200404
